FAERS Safety Report 8472628-3 (Version None)
Quarter: 2012Q2

REPORT INFORMATION
  Report Type: 
  Country: None (occurrence: None)
  Receive Date: 20120627
  Receipt Date: 20120418
  Transmission Date: 20120825
  Serious: No
  Sender: FDA-Public Use
  Company Number: US-AMGEN-USASP2012024795

PATIENT
  Age: 91 Year
  Sex: Male
  Weight: 79 kg

DRUGS (4)
  1. SYNTHROID [Concomitant]
     Indication: THYROID DISORDER
     Dosage: 0.75 MUG, QD
  2. LUMIGAN [Concomitant]
     Indication: GLAUCOMA
     Dosage: UNK UNK, QD
     Route: 031
  3. PROCRIT [Suspect]
     Indication: RED BLOOD CELL COUNT DECREASED
     Dosage: UNK UNK, Q4WK
     Route: 058
     Dates: start: 20110101
  4. SYNTHROID [Concomitant]
     Dosage: 0.88 MUG, QD

REACTIONS (3)
  - HAEMOGLOBIN DECREASED [None]
  - THYROID DISORDER [None]
  - CONSTIPATION [None]
